FAERS Safety Report 11138592 (Version 1)
Quarter: 2015Q2

REPORT INFORMATION
  Report Type: Spontaneous
  Country: US (occurrence: US)
  Receive Date: 20150527
  Receipt Date: 20150527
  Transmission Date: 20150821
  Serious: Yes (Hospitalization, Other)
  Sender: FDA-Public Use
  Company Number: US-ASTRAZENECA-2015SE50701

PATIENT
  Age: 892 Month
  Sex: Female
  Weight: 80.7 kg

DRUGS (4)
  1. CRESTOR [Suspect]
     Active Substance: ROSUVASTATIN CALCIUM
     Indication: BLOOD CHOLESTEROL INCREASED
     Route: 048
     Dates: start: 2008
  2. SOTALOL. [Concomitant]
     Active Substance: SOTALOL
     Indication: EXTRASYSTOLES
     Route: 048
  3. LEVOTHYROXINE [Concomitant]
     Active Substance: LEVOTHYROXINE
     Indication: GREY TURNER^S SIGN
     Route: 048
     Dates: start: 1992
  4. METFORMIN [Concomitant]
     Active Substance: METFORMIN HYDROCHLORIDE
     Indication: DIABETES MELLITUS
     Route: 048

REACTIONS (5)
  - Extrasystoles [Unknown]
  - Non-alcoholic steatohepatitis [Unknown]
  - Device occlusion [Unknown]
  - Diabetes mellitus [Unknown]
  - Hepatic fibrosis [Unknown]

NARRATIVE: CASE EVENT DATE: 201211
